FAERS Safety Report 5906253-2 (Version None)
Quarter: 2008Q4

REPORT INFORMATION
  Report Type: 
  Country: None (occurrence: None)
  Receive Date: 20081002
  Receipt Date: 20080930
  Transmission Date: 20090506
  Serious: Yes (Death, Other)
  Sender: FDA-Public Use
  Company Number: JP-BAYER-200811476BYL

PATIENT
  Age: 57 Year
  Sex: Female

DRUGS (2)
  1. FLUDARA [Suspect]
     Indication: ADULT T-CELL LYMPHOMA/LEUKAEMIA
     Route: 065
  2. MELPHALAN [Concomitant]
     Indication: STEM CELL TRANSPLANT
     Route: 065

REACTIONS (2)
  - ACUTE GRAFT VERSUS HOST DISEASE [None]
  - HEPATITIS B [None]
